FAERS Safety Report 6510008-8 (Version None)
Quarter: 2009Q4

REPORT INFORMATION
  Report Type: 
  Country: None (occurrence: None)
  Receive Date: 20091222
  Receipt Date: 20090708
  Transmission Date: 20100525
  Serious: No
  Sender: FDA-Public Use
  Company Number: US-ABBOTT-09P-163-0586369-00

PATIENT
  Sex: Female
  Weight: 61.29 kg

DRUGS (1)
  1. OMNICEF [Suspect]
     Indication: SINUSITIS

REACTIONS (1)
  - URTICARIA [None]
